FAERS Safety Report 16837940 (Version 1)
Quarter: 2019Q3

REPORT INFORMATION
  Report Type: Report from Study
  Country: ES (occurrence: ES)
  Receive Date: 20190923
  Receipt Date: 20190923
  Transmission Date: 20191005
  Serious: Yes (Other)
  Sender: FDA-Public Use
  Company Number: ES-TEVA-2019-ES-1110811

PATIENT
  Age: 79 Year
  Sex: Female

DRUGS (9)
  1. METAMIZOL (111A) [Concomitant]
     Active Substance: METAMIZOL SODIUM
     Route: 042
     Dates: start: 20190828
  2. VALSARTAN  160MG [Suspect]
     Active Substance: VALSARTAN
     Indication: HYPERTENSION
     Dosage: 160 MG ORAL WITH DINNER (20H)/ DAY/ 3 DAYS
     Route: 048
     Dates: start: 20190826, end: 20190828
  3. CLONAZEPAM 0,5 MG COMP [Concomitant]
     Route: 048
     Dates: start: 20190827
  4. GABAPENTINA 400 MG CAPS [Concomitant]
     Route: 048
     Dates: start: 20190828
  5. OMEPRAZOL 20 MG CAPS [Concomitant]
     Route: 048
  6. BROMAZEPAM 1,5 MG CAPS [Concomitant]
     Route: 048
  7. BUTILESCOPOLAMINA 20 MG/1 ML AMP [Concomitant]
     Dosage: 20 MG/1 ML / DAY
     Route: 042
     Dates: start: 20190828
  8. METAMIZOL (111A) [Concomitant]
     Active Substance: METAMIZOL SODIUM
     Route: 048
     Dates: start: 20190828, end: 20190828
  9. ENOXAPARINA 40 MG JER PREC BS (INHIXA) [Concomitant]
     Route: 058
     Dates: start: 20190827

REACTIONS (1)
  - Acute kidney injury [Recovered/Resolved]

NARRATIVE: CASE EVENT DATE: 20190828
